FAERS Safety Report 5446184-8 (Version None)
Quarter: 2007Q3

REPORT INFORMATION
  Report Type: 
  Country: None (occurrence: None)
  Receive Date: 20070731
  Receipt Date: 20061030
  Transmission Date: 20080115
  Serious: Yes (Life-Threatening)
  Sender: FDA-Public Use
  Company Number: US-2006-033252

PATIENT
  Age: 63 Year
  Sex: Female

DRUGS (1)
  1. MAGNEVIST [Suspect]
     Indication: NUCLEAR MAGNETIC RESONANCE IMAGING
     Dosage: 20 ML, 1 DOSE, INTRAVENOUS
     Route: 042
     Dates: start: 20061027, end: 20061027

REACTIONS (3)
  - BURNING SENSATION [None]
  - DYSPHAGIA [None]
  - OBSTRUCTIVE AIRWAYS DISORDER [None]
